FAERS Safety Report 6808864-9 (Version None)
Quarter: 2010Q2

REPORT INFORMATION
  Report Type: 
  Country: None (occurrence: None)
  Receive Date: 20100630
  Receipt Date: 20091019
  Transmission Date: 20101027
  Serious: No
  Sender: FDA-Public Use
  Company Number: US-PFIZER INC-2009272507

PATIENT
  Sex: Male
  Weight: 71.7 kg

DRUGS (3)
  1. VIAGRA [Suspect]
     Indication: ERECTILE DYSFUNCTION
     Dosage: 100 MG, AS NEEDED
  2. GLYBURIDE [Concomitant]
     Indication: DIABETES MELLITUS
     Dosage: UNK
  3. GLUCOPHAGE [Concomitant]
     Indication: DIABETES MELLITUS
     Dosage: UNK

REACTIONS (1)
  - DRUG INEFFECTIVE [None]
